FAERS Safety Report 20491963 (Version 1)
Quarter: 2022Q1

REPORT INFORMATION
  Report Type: Spontaneous
  Country: US (occurrence: US)
  Receive Date: 20220218
  Receipt Date: 20220218
  Transmission Date: 20220423
  Serious: No
  Sender: FDA-Public Use
  Company Number: US-PFIZER INC-2021562496

PATIENT
  Age: 69 Year
  Sex: Female

DRUGS (1)
  1. LYRICA [Suspect]
     Active Substance: PREGABALIN
     Indication: Fibromyalgia
     Dosage: 300 MG, DAILY

REACTIONS (9)
  - Depression [Unknown]
  - Malaise [Unknown]
  - Gastric disorder [Unknown]
  - Nausea [Unknown]
  - Pruritus [Unknown]
  - Asthenia [Unknown]
  - Insomnia [Unknown]
  - Pain [Unknown]
  - Abdominal pain upper [Unknown]
